FAERS Safety Report 8212822-X (Version None)
Quarter: 2012Q1

REPORT INFORMATION
  Report Type: 
  Country: None (occurrence: None)
  Receive Date: 20120315
  Receipt Date: 20120219
  Transmission Date: 20120608
  Serious: Yes (Hospitalization, Other)
  Sender: FDA-Public Use
  Company Number: PHHY2012ES020498

PATIENT
  Age: 76 Year
  Sex: Female

DRUGS (4)
  1. IBUPROFEN [Concomitant]
     Indication: BONE PAIN
     Dosage: 600 MG, Q8H
  2. ESCITALOPRAM [Concomitant]
     Dosage: 20 MG, QD
  3. METFORMIN HCL [Suspect]
     Indication: TYPE 2 DIABETES MELLITUS
     Dosage: 850 MG, Q8H
     Route: 048
  4. MIRTAZAPINE [Concomitant]
     Dosage: 30 MG, QD

REACTIONS (8)
  - LACTIC ACIDOSIS [None]
  - NAUSEA [None]
  - BLADDER NEOPLASM [None]
  - DRY SKIN [None]
  - VOMITING [None]
  - MUCOSAL DRYNESS [None]
  - HYDRONEPHROSIS [None]
  - DIARRHOEA [None]
